FAERS Safety Report 10229421 (Version 1)
Quarter: 2014Q2

REPORT INFORMATION
  Report Type: Spontaneous
  Country: US (occurrence: None)
  Receive Date: 20140513
  Receipt Date: 20140513
  Transmission Date: 20141212
  Serious: Yes (Other)
  Sender: FDA-Public Use
  Company Number: SYM-2014-15541

PATIENT
  Age: 16 Year
  Sex: Male
  Weight: 52.15 kg

DRUGS (8)
  1. EFFEXOR (VENLAFAXINE HYDROCHLORIDE) (VENLAFAXINE HYDROCHLORIDE) [Suspect]
     Indication: CATAPLEXY
     Dosage: 50 MG , 1 IN 1 D, ORAL  UNKNOWN - UNKNOWN THERAPY DATES
     Route: 048
  2. XYREM (OXYBATE SODIUM( (500 MILLIGRAM/ MILLILITERS, ORAL) [Suspect]
     Indication: NARCOLEPSY
     Dosage: DOSE ADJUSTMENTS , ORAL UNKNOWN - UNKNOWN THERAPY DATES
     Route: 048
     Dates: start: 20130927, end: 2013
  3. XYREM (OXYBATE SODIUM( (500 MILLIGRAM/ MILLILITERS, ORAL) [Suspect]
     Indication: CATAPLEXY
     Dosage: DOSE ADJUSTMENTS , ORAL UNKNOWN - UNKNOWN THERAPY DATES
     Route: 048
     Dates: start: 20130927, end: 2013
  4. XYREM (OXYBATE SODIUM( (500 MILLIGRAM/ MILLILITERS, ORAL) [Suspect]
     Indication: SOMNOLENCE
     Dosage: DOSE ADJUSTMENTS , ORAL UNKNOWN - UNKNOWN THERAPY DATES
     Route: 048
     Dates: start: 20130927, end: 2013
  5. MODAFINIL (MODAFINIL) (100 MILLIGRAM) (MODAFINIL) [Suspect]
     Indication: NARCOLEPSY
     Dosage: 100 MG, 2 IN 1 D, ORAL UNKNOWN - ONGOING THERAPY DATES
     Route: 048
  6. MIRALAX DC (MACROGOL) (MACROGOL) [Concomitant]
  7. PROBIOTICS AGENT CULTURELLE (PROBIOTICS NOS) (PROBIOTICS NOS) [Concomitant]
  8. PAXIL (PAROXETINE HYDROCHLORIDE) (PAROXETINE HD [Concomitant]

REACTIONS (7)
  - Weight decreased [None]
  - Constipation [None]
  - Decreased appetite [None]
  - Unevaluable event [None]
  - Chest pain [None]
  - Inflammation [None]
  - Fatigue [None]
